FAERS Safety Report 7592864-8 (Version None)
Quarter: 2011Q3

REPORT INFORMATION
  Report Type: 
  Country: None (occurrence: None)
  Receive Date: 20110706
  Receipt Date: 20110629
  Transmission Date: 20111222
  Serious: Yes (Other)
  Sender: FDA-Public Use
  Company Number: JP-PFIZER INC-2011144563

PATIENT
  Age: 29 Year
  Sex: Male

DRUGS (2)
  1. AMPICILLIN SODIUM/SULBACTAM SODIUM [Suspect]
     Indication: ANTIMICROBIAL SUSCEPTIBILITY TEST
     Dosage: UNK
  2. TEICOPLANIN [Concomitant]
     Indication: ANTIMICROBIAL SUSCEPTIBILITY TEST
     Dosage: UNK

REACTIONS (1)
  - HISTIOCYTOSIS HAEMATOPHAGIC [None]
